FAERS Safety Report 11629622 (Version 4)
Quarter: 2015Q4

REPORT INFORMATION
  Report Type: Spontaneous
  Country: US (occurrence: US)
  Receive Date: 20151014
  Receipt Date: 20151105
  Transmission Date: 20160304
  Serious: No
  Sender: FDA-Public Use
  Company Number: US-009507513-1510USA004698

PATIENT
  Age: 32 Year
  Sex: Female
  Weight: 110.57 kg

DRUGS (1)
  1. NEXPLANON [Suspect]
     Active Substance: ETONOGESTREL
     Indication: PRODUCT USED FOR UNKNOWN INDICATION
     Dosage: 1 DF, EVERY THREE YEARS
     Route: 059
     Dates: start: 20121010, end: 20151023

REACTIONS (8)
  - Device deployment issue [Recovered/Resolved]
  - Device dislocation [Recovered/Resolved]
  - Inappropriate schedule of drug administration [Unknown]
  - Medical device complication [Recovered/Resolved]
  - Incorrect drug administration duration [Recovered/Resolved]
  - Medical device complication [Recovered/Resolved]
  - Anxiety [Unknown]
  - No adverse event [Unknown]

NARRATIVE: CASE EVENT DATE: 2013
